FAERS Safety Report 6864440-3 (Version None)
Quarter: 2010Q3

REPORT INFORMATION
  Report Type: 
  Country: None (occurrence: None)
  Receive Date: 20100721
  Receipt Date: 20080326
  Transmission Date: 20110219
  Serious: No
  Sender: FDA-Public Use
  Company Number: US-PFIZER INC-2008028773

PATIENT
  Sex: Female
  Weight: 97.7 kg

DRUGS (5)
  1. CHANTIX [Suspect]
     Indication: SMOKING CESSATION THERAPY
     Dates: start: 20080201
  2. CARBAMAZEPINE [Concomitant]
     Indication: CONVULSION
  3. NORVASC [Concomitant]
  4. ATENOLOL [Concomitant]
  5. LAMICTAL [Concomitant]

REACTIONS (2)
  - SWELLING [None]
  - WEIGHT INCREASED [None]
